FAERS Safety Report 4510683-3 (Version None)
Quarter: 2004Q4

REPORT INFORMATION
  Report Type: 
  Country: None (occurrence: None)
  Receive Date: 20041025
  Receipt Date: 20040611
  Transmission Date: 20050328
  Serious: Yes (Other)
  Sender: FDA-Public Use
  Company Number: NSADSS2002035865

PATIENT
  Age: 8 Year
  Sex: Male

DRUGS (15)
  1. REMICADE [Suspect]
     Indication: CROHN'S DISEASE
     Dosage: 200 MG, 1 IN 1 TOTAL, INTRAVENOUS DRIP
     Route: 041
     Dates: start: 20021002, end: 20021002
  2. REMICADE [Suspect]
     Indication: CROHN'S DISEASE
     Dosage: 200 MG, 1 IN 1 TOTAL, INTRAVENOUS DRIP
     Route: 041
     Dates: start: 19991110
  3. REMICADE [Suspect]
     Indication: CROHN'S DISEASE
     Dosage: 200 MG, 1 IN 1 TOTAL, INTRAVENOUS DRIP
     Route: 041
     Dates: start: 19991201
  4. REMICADE [Suspect]
     Indication: CROHN'S DISEASE
     Dosage: 200 MG, 1 IN 1 TOTAL, INTRAVENOUS DRIP
     Route: 041
     Dates: start: 19991229
  5. REMICADE [Suspect]
     Indication: CROHN'S DISEASE
     Dosage: 200 MG, 1 IN 1 TOTAL, INTRAVENOUS DRIP
     Route: 041
     Dates: start: 20020807
  6. REMICADE [Suspect]
  7. BENADRYL [Concomitant]
  8. MERCAPTOPURINE [Concomitant]
  9. PREDNISONE [Concomitant]
  10. PENTASA [Concomitant]
  11. SOLU-MEDROL [Concomitant]
  12. TYLENOL [Concomitant]
  13. IRON (IRON) [Concomitant]
  14. VITAMINS (VITAMINS) [Concomitant]
  15. PRILOSEC [Concomitant]

REACTIONS (9)
  - ABDOMINAL PAIN [None]
  - ANAPHYLACTIC REACTION [None]
  - ARTHRITIS [None]
  - DIARRHOEA HAEMORRHAGIC [None]
  - FAECAL INCONTINENCE [None]
  - HEADACHE [None]
  - PNEUMONIA [None]
  - PYREXIA [None]
  - VOMITING [None]
